FAERS Safety Report 14472635 (Version 4)
Quarter: 2019Q1

REPORT INFORMATION
  Report Type: Report from Study
  Country: KR (occurrence: KR)
  Receive Date: 20180201
  Receipt Date: 20190305
  Transmission Date: 20190417
  Serious: Yes (Other)
  Sender: FDA-Public Use
  Company Number: KR-ROCHE-2058269

PATIENT
  Age: 57 Year
  Sex: Female
  Weight: 69 kg

DRUGS (12)
  1. TRASTUZUMAB EMTANSINE [Suspect]
     Active Substance: ADO-TRASTUZUMAB EMTANSINE
     Dosage: THE REASON FOR DOSE ADJUSTMENT WAS PLATELET COUNT DECREASED.
     Route: 065
     Dates: start: 20180412
  2. TRASTUZUMAB EMTANSINE [Suspect]
     Active Substance: ADO-TRASTUZUMAB EMTANSINE
     Route: 065
     Dates: start: 20180503
  3. TRASTUZUMAB EMTANSINE [Suspect]
     Active Substance: ADO-TRASTUZUMAB EMTANSINE
     Route: 065
     Dates: start: 20180705
  4. TRASTUZUMAB EMTANSINE [Suspect]
     Active Substance: ADO-TRASTUZUMAB EMTANSINE
     Dosage: THE REASON FOR DOSE ADJUSTMENT WAS PLATELET COUNT DECREASED.
     Route: 065
     Dates: start: 20180802
  5. TRASTUZUMAB EMTANSINE [Suspect]
     Active Substance: ADO-TRASTUZUMAB EMTANSINE
     Dosage: THE REASON FOR DOSE ADJUSTMENT WAS PLATELET COUNT DECREASED.
     Route: 065
     Dates: start: 20180823
  6. MAGNESIUM OXIDE. [Concomitant]
     Active Substance: MAGNESIUM OXIDE
     Route: 048
     Dates: start: 20180214, end: 20180310
  7. LANSTON [Concomitant]
     Active Substance: LANSOPRAZOLE
     Route: 048
     Dates: start: 20171115, end: 20171130
  8. LEVOPRIDE (SOUTH KOREA) [Concomitant]
     Route: 048
     Dates: start: 20171115, end: 20171130
  9. TRASTUZUMAB EMTANSINE [Suspect]
     Active Substance: ADO-TRASTUZUMAB EMTANSINE
     Route: 065
     Dates: start: 20180614
  10. TRASTUZUMAB EMTANSINE [Suspect]
     Active Substance: ADO-TRASTUZUMAB EMTANSINE
     Dosage: THE REASON FOR DOSE ADJUSTMENT WAS PLATELET COUNT DECREASED.
     Route: 065
     Dates: start: 20180308
  11. TRASTUZUMAB EMTANSINE [Suspect]
     Active Substance: ADO-TRASTUZUMAB EMTANSINE
     Indication: BREAST CANCER
     Dosage: 30/NOV/2017, 21/DEC/2017, 11/JAN/2018.
     Route: 065
     Dates: start: 20171109
  12. TRASTUZUMAB EMTANSINE [Suspect]
     Active Substance: ADO-TRASTUZUMAB EMTANSINE
     Route: 065
     Dates: start: 20180524

REACTIONS (11)
  - Cough [Recovered/Resolved]
  - Musculoskeletal pain [Recovering/Resolving]
  - Thrombocytopenia [Recovered/Resolved]
  - Depression [Not Recovered/Not Resolved]
  - Vaginal haemorrhage [Recovered/Resolved]
  - Dermatitis acneiform [Not Recovered/Not Resolved]
  - Urinary retention [Recovered/Resolved]
  - Pyrexia [Recovered/Resolved]
  - Peripheral sensory neuropathy [Not Recovered/Not Resolved]
  - Dry mouth [Recovered/Resolved]
  - Decreased appetite [Recovered/Resolved]

NARRATIVE: CASE EVENT DATE: 20171110
